FAERS Safety Report 18491674 (Version 1)
Quarter: 2020Q4

REPORT INFORMATION
  Report Type: Spontaneous
  Country: US (occurrence: US)
  Receive Date: 20201111
  Receipt Date: 20201111
  Transmission Date: 20210114
  Serious: Yes (Death, Hospitalization)
  Sender: FDA-Public Use
  Company Number: US-TEVA-2020-US-1846357

PATIENT
  Age: 20 Year
  Sex: Female

DRUGS (5)
  1. LEUCOVORIN. [Concomitant]
     Active Substance: LEUCOVORIN
     Indication: B PRECURSOR TYPE ACUTE LEUKAEMIA
     Dosage: RESCUE THERAPY
     Route: 065
  2. METHOTREXATE. [Suspect]
     Active Substance: METHOTREXATE
     Dosage: INTERIM MAINTENANCE
     Route: 042
  3. DEXTROMETHORPHAN [Suspect]
     Active Substance: DEXTROMETHORPHAN
     Indication: LEUKOENCEPHALOPATHY
     Route: 065
  4. AMINOPHYLLINE. [Suspect]
     Active Substance: AMINOPHYLLINE
     Indication: LEUKOENCEPHALOPATHY
     Route: 065
  5. METHOTREXATE. [Suspect]
     Active Substance: METHOTREXATE
     Indication: B PRECURSOR TYPE ACUTE LEUKAEMIA
     Dosage: MAINTENANCE THERAPY
     Route: 037

REACTIONS (5)
  - Leukoencephalopathy [Fatal]
  - Respiratory failure [Fatal]
  - Autonomic nervous system imbalance [Fatal]
  - Drug ineffective [Unknown]
  - Dystonia [Fatal]
